FAERS Safety Report 4885961-9 (Version None)
Quarter: 2006Q1

REPORT INFORMATION
  Report Type: 
  Country: None (occurrence: None)
  Receive Date: 20060117
  Receipt Date: 20060106
  Transmission Date: 20060701
  Serious: Yes (Death, Hospitalization)
  Sender: FDA-Public Use
  Company Number: 2006EU000040

PATIENT
  Age: 56 Year
  Sex: Male

DRUGS (11)
  1. FK506 (TACROLIMUS CAPSULES) [Suspect]
     Indication: LIVER TRANSPLANT
     Dosage: 3 MG, BID, ORAL
     Route: 048
     Dates: start: 20051111
  2. MYCOPHENOLATE MOFETIL (MYCOPHENOLATE MOFETIL) [Suspect]
     Indication: LIVER TRANSPLANT
     Dosage: SEE IMAGE
     Dates: start: 20051107, end: 20051111
  3. MYCOPHENOLATE MOFETIL (MYCOPHENOLATE MOFETIL) [Suspect]
     Indication: LIVER TRANSPLANT
     Dosage: SEE IMAGE
     Dates: start: 20051112, end: 20051116
  4. DACLIZUMAB (DACLIZUMAB) [Suspect]
     Indication: LIVER TRANSPLANT
     Dosage: 100 MG, UID/QD, IV NOS
     Route: 042
     Dates: start: 20051107, end: 20051114
  5. PREDNISOLONE [Suspect]
     Indication: LIVER TRANSPLANT
     Dosage: 40 MG, UID/QD
     Dates: start: 20051107
  6. FUROSEMIDE [Concomitant]
  7. INSULIN [Concomitant]
  8. PANTOPRAZOLE SODIUM [Concomitant]
  9. MEROPENEM (MEROPENEM) [Concomitant]
  10. LINEZOLID (LINEZOLID) [Concomitant]
  11. VORICONAZOLE (VORICONAZOLE) [Concomitant]

REACTIONS (1)
  - ASPERGILLOSIS [None]
